FAERS Safety Report 8432493-7 (Version None)
Quarter: 2012Q2

REPORT INFORMATION
  Report Type: 
  Country: None (occurrence: None)
  Receive Date: 20120613
  Receipt Date: 20120605
  Transmission Date: 20120825
  Serious: Yes (Other)
  Sender: FDA-Public Use
  Company Number: PHHY2012CA049220

PATIENT
  Sex: Female

DRUGS (1)
  1. TRILEPTAL [Suspect]
     Dosage: 150 MG, UNK
     Route: 048
     Dates: start: 20120513, end: 20120516

REACTIONS (11)
  - HEARING IMPAIRED [None]
  - HEADACHE [None]
  - DIZZINESS [None]
  - DIPLOPIA [None]
  - VAGINAL INFECTION [None]
  - ECZEMA [None]
  - RETINOPATHY [None]
  - CHEST PAIN [None]
  - HALO VISION [None]
  - VISUAL IMPAIRMENT [None]
  - RASH [None]
